FAERS Safety Report 7078251 (Version 7)
Quarter: 2012Q4

REPORT INFORMATION
  Report Type: Report from Study
  Country: JP (occurrence: JP)
  Receive Date: 20090811
  Receipt Date: 20121008
  Transmission Date: 20130627
  Serious: Yes (Death)
  Sender: FDA-Public Use
  Company Number: PHHO2009JP04066

PATIENT
  Age: 64 Year
  Sex: Female
  Weight: 61 kg

DRUGS (6)
  1. PLACEBO [Suspect]
     Indication: PANCREATIC NEUROENDOCRINE TUMOUR
     Dosage: 10 mg, QD
     Route: 048
     Dates: start: 20081029
  2. RAD [Suspect]
     Indication: PANCREATIC NEUROENDOCRINE TUMOUR
     Dosage: 10 mg, QD
     Route: 048
     Dates: start: 20090126
  3. TAKEPRON [Concomitant]
     Dosage: UNK
  4. ULCERLMIN [Concomitant]
     Dosage: UNK
  5. EXCELASE [Concomitant]
     Dosage: UNK
  6. BIOFERMIN R [Concomitant]
     Indication: DIARRHOEA
     Dosage: UNK
     Dates: start: 20080913

REACTIONS (4)
  - Death [Fatal]
  - Vomiting [Unknown]
  - Weight decreased [Unknown]
  - Productive cough [Unknown]
